FAERS Safety Report 4685153-2 (Version None)
Quarter: 2005Q2

REPORT INFORMATION
  Report Type: 
  Country: None (occurrence: None)
  Receive Date: 20050608
  Receipt Date: 20050601
  Transmission Date: 20051028
  Serious: Yes (Hospitalization, Other)
  Sender: FDA-Public Use
  Company Number: 200515139GDDC

PATIENT
  Sex: Female

DRUGS (3)
  1. ARAVA [Suspect]
     Dosage: DOSE: 100 X1
     Route: 048
     Dates: start: 20050426, end: 20050511
  2. CONTROLOC [Concomitant]
     Route: 048
  3. KALIPOZ PROLONGATUM [Concomitant]
     Route: 048

REACTIONS (3)
  - BLOOD CREATINE PHOSPHOKINASE INCREASED [None]
  - MYALGIA [None]
  - MYOSITIS [None]
